FAERS Safety Report 16751935 (Version 1)
Quarter: 2019Q3

REPORT INFORMATION
  Report Type: Spontaneous
  Country: DE (occurrence: DE)
  Receive Date: 20190828
  Receipt Date: 20190828
  Transmission Date: 20191005
  Serious: Yes (Other)
  Sender: FDA-Public Use
  Company Number: PHHY2019DE199645

PATIENT
  Sex: Female

DRUGS (2)
  1. QUETIAPIN HEXAL [Suspect]
     Active Substance: QUETIAPINE FUMARATE
     Indication: PRODUCT USED FOR UNKNOWN INDICATION
     Dosage: 25 MG, UNK
     Route: 065
  2. QUETIAPIN HEXAL [Suspect]
     Active Substance: QUETIAPINE FUMARATE
     Dosage: UNK (INTAKE OF MORE THAN 20 TABLETS)
     Route: 065

REACTIONS (3)
  - Suicide attempt [Unknown]
  - Bezoar [Unknown]
  - Intentional overdose [Unknown]
